FAERS Safety Report 18247600 (Version 3)
Quarter: 2020Q3

REPORT INFORMATION
  Report Type: Spontaneous
  Country: US (occurrence: US)
  Receive Date: 20200909
  Receipt Date: 20200910
  Transmission Date: 20201103
  Serious: Yes (Other)
  Sender: FDA-Public Use
  Company Number: US-CIPLA LTD.-2020US06290

PATIENT

DRUGS (13)
  1. WARFARIN [Suspect]
     Active Substance: WARFARIN
     Dosage: 12.5 MG/15 MG ALTERNATING ONCE DAILY, QD
     Route: 065
     Dates: start: 20200312
  2. WARFARIN [Suspect]
     Active Substance: WARFARIN
     Dosage: 5 MG/5 DAYS PER WEEK
     Route: 065
     Dates: start: 20200117
  3. WARFARIN [Suspect]
     Active Substance: WARFARIN
     Dosage: 12.5 MG/15 MG ALTERNATING ONCE DAILY, QD
     Route: 065
     Dates: start: 20200306
  4. WARFARIN [Suspect]
     Active Substance: WARFARIN
     Dosage: 12.5 MG/15 MG ALTERNATING ONCE DAILY, QD
     Route: 065
     Dates: start: 20200318
  5. WARFARIN [Suspect]
     Active Substance: WARFARIN
     Dosage: 10 MILLIGRAM, QD
     Route: 065
     Dates: start: 20200214
  6. WARFARIN [Suspect]
     Active Substance: WARFARIN
     Indication: ANTIPHOSPHOLIPID SYNDROME
     Dosage: UNK
     Route: 065
  7. WARFARIN [Suspect]
     Active Substance: WARFARIN
     Indication: THROMBOSIS PROPHYLAXIS
     Dosage: 10 MILLIGRAM DAILY
     Route: 065
  8. WARFARIN [Suspect]
     Active Substance: WARFARIN
     Dosage: 5 MG/5 DAYS PER WEEK
     Route: 065
     Dates: start: 20200124
  9. WARFARIN [Suspect]
     Active Substance: WARFARIN
     Dosage: 12.5 MG/15 MG ALTERNATING ONCE DAILY, QD
     Route: 065
     Dates: start: 20200228
  10. WARFARIN [Suspect]
     Active Substance: WARFARIN
     Dosage: 10 MILLIGRAM, QD
     Route: 065
     Dates: start: 20200221
  11. WARFARIN [Suspect]
     Active Substance: WARFARIN
     Dosage: 10 MILLIGRAM, QD
     Route: 065
  12. APIXABAN [Suspect]
     Active Substance: APIXABAN
     Indication: ANTIPHOSPHOLIPID SYNDROME
     Dosage: UNK
     Route: 065
  13. WARFARIN [Suspect]
     Active Substance: WARFARIN
     Dosage: 2.5 MILLIGRAM, QD
     Route: 065
     Dates: start: 20200110

REACTIONS (9)
  - Drug interaction [Unknown]
  - Food interaction [Unknown]
  - Anticoagulation drug level above therapeutic [Recovering/Resolving]
  - Treatment noncompliance [Unknown]
  - Acute myocardial infarction [Unknown]
  - Haemorrhage [Unknown]
  - Cardiac failure [Unknown]
  - Periorbital haematoma [Unknown]
  - Ecchymosis [Unknown]

NARRATIVE: CASE EVENT DATE: 201912
